FAERS Safety Report 5593373-8 (Version None)
Quarter: 2007Q4

REPORT INFORMATION
  Report Type: 
  Country: None (occurrence: None)
  Receive Date: 20071218
  Receipt Date: 20061106
  Transmission Date: 20080405
  Serious: Yes (Hospitalization, Other)
  Sender: FDA-Public Use
  Company Number: 2006139427

PATIENT
  Age: 40 Year
  Sex: Male
  Weight: 110.7 kg

DRUGS (1)
  1. BEXTRA [Suspect]
     Dosage: 20 MG (1 IN 1 D)
     Dates: start: 20030109

REACTIONS (1)
  - MYOCARDIAL INFARCTION [None]
